FAERS Safety Report 6566880-9 (Version None)
Quarter: 2010Q1

REPORT INFORMATION
  Report Type: 
  Country: None (occurrence: None)
  Receive Date: 20100202
  Receipt Date: 20100122
  Transmission Date: 20100710
  Serious: Yes (Hospitalization)
  Sender: FDA-Public Use
  Company Number: B0630306A

PATIENT
  Age: 49 Year
  Sex: Female

DRUGS (9)
  1. LAMIVUDINE [Suspect]
     Indication: HIV INFECTION
     Route: 065
     Dates: start: 20041201
  2. ZIDOVUDINE [Suspect]
     Indication: HIV INFECTION
     Route: 065
     Dates: start: 20041201
  3. EFAVIRENZ [Suspect]
     Indication: HIV INFECTION
     Route: 065
     Dates: start: 20041201
  4. DIDANOSINE [Suspect]
     Indication: HIV INFECTION
     Route: 065
  5. ATAZANAVIR [Suspect]
     Indication: HIV INFECTION
     Route: 065
  6. RITONAVIR [Suspect]
     Indication: HIV INFECTION
     Route: 065
  7. CO-TRIMOXAZOLE [Concomitant]
     Indication: HIV INFECTION
     Dosage: 1TAB PER DAY
     Route: 048
  8. AZITHROMYCIN [Concomitant]
     Dosage: 1200MG WEEKLY
     Route: 048
  9. FLUCONAZOLE [Concomitant]
     Dosage: 200MG PER DAY
     Route: 048

REACTIONS (8)
  - BRAIN HERNIATION [None]
  - CRYPTOCOCCOSIS [None]
  - DRUG INTOLERANCE [None]
  - HEADACHE [None]
  - IMMUNE RECONSTITUTION SYNDROME [None]
  - INTRACRANIAL PRESSURE INCREASED [None]
  - LOCALISED OEDEMA [None]
  - MENTAL STATUS CHANGES [None]
